APPROVED DRUG PRODUCT: IPRATROPIUM BROMIDE
Active Ingredient: IPRATROPIUM BROMIDE
Strength: 0.02%
Dosage Form/Route: SOLUTION;INHALATION
Application: A075111 | Product #001
Applicant: ACTAVIS MID ATLANTIC LLC
Approved: Apr 22, 1999 | RLD: No | RS: No | Type: DISCN